FAERS Safety Report 8295624-8 (Version None)
Quarter: 2012Q2

REPORT INFORMATION
  Report Type: 
  Country: None (occurrence: None)
  Receive Date: 20120416
  Receipt Date: 20120401
  Transmission Date: 20120825
  Serious: Yes (Death)
  Sender: FDA-Public Use
  Company Number: 2012-169

PATIENT
  Age: 76 Year
  Sex: Female

DRUGS (1)
  1. CLOZAPINE [Suspect]
     Indication: DEPRESSION
     Dosage: 500 MG, QD, ORAL
     Route: 048

REACTIONS (3)
  - MYOCARDIAL INFARCTION [None]
  - COMA [None]
  - ATRIOVENTRICULAR BLOCK COMPLETE [None]
